FAERS Safety Report 10437637 (Version 1)
Quarter: 2014Q3

REPORT INFORMATION
  Report Type: Spontaneous
  Country: US (occurrence: US)
  Receive Date: 20140908
  Receipt Date: 20140908
  Transmission Date: 20150326
  Serious: No
  Sender: FDA-Public Use
  Company Number: US-BRISTOL-MYERS SQUIBB COMPANY-20979175

PATIENT
  Age: 48 Year
  Sex: Female

DRUGS (8)
  1. ABILIFY [Suspect]
     Active Substance: ARIPIPRAZOLE
     Indication: BIPOLAR DISORDER
     Dosage: DOSES :4.?THERAPY STOP DATE:3-6-2014.
     Route: 048
     Dates: start: 20140530, end: 20140606
  2. ABILIFY [Suspect]
     Active Substance: ARIPIPRAZOLE
     Indication: BIPOLAR I DISORDER
     Dosage: DOSES :4.?THERAPY STOP DATE:3-6-2014.
     Route: 048
     Dates: start: 20140530, end: 20140606
  3. TRAZODONE HYDROCHLORIDE. [Concomitant]
     Active Substance: TRAZODONE HYDROCHLORIDE
  4. ABILIFY [Suspect]
     Active Substance: ARIPIPRAZOLE
     Indication: HALLUCINATION
     Dosage: DOSES :4.?THERAPY STOP DATE:3-6-2014.
     Route: 048
     Dates: start: 20140530, end: 20140606
  5. ABILIFY [Suspect]
     Active Substance: ARIPIPRAZOLE
     Indication: POST-TRAUMATIC STRESS DISORDER
     Dosage: DOSES :4.?THERAPY STOP DATE:3-6-2014.
     Route: 048
     Dates: start: 20140530, end: 20140606
  6. EFFEXOR [Concomitant]
     Active Substance: VENLAFAXINE HYDROCHLORIDE
  7. HYDROXYZINE [Concomitant]
     Active Substance: HYDROXYZINE\HYDROXYZINE HYDROCHLORIDE
  8. ABILIFY [Suspect]
     Active Substance: ARIPIPRAZOLE
     Indication: SUICIDAL IDEATION
     Dosage: DOSES :4.?THERAPY STOP DATE:3-6-2014.
     Route: 048
     Dates: start: 20140530, end: 20140606

REACTIONS (2)
  - Psychomotor hyperactivity [Unknown]
  - Somnolence [Recovered/Resolved]

NARRATIVE: CASE EVENT DATE: 20140603
